FAERS Safety Report 8508230-4 (Version None)
Quarter: 2012Q3

REPORT INFORMATION
  Report Type: 
  Country: None (occurrence: None)
  Receive Date: 20120713
  Receipt Date: 20120709
  Transmission Date: 20120928
  Serious: Yes (Hospitalization)
  Sender: FDA-Public Use
  Company Number: NL-GENZYME-CAMP-1002323

PATIENT
  Age: 54 Year
  Sex: Male

DRUGS (6)
  1. CAMPATH [Suspect]
     Indication: T-CELL LYMPHOMA
     Dosage: 30 MG, 1XPER CYCLE FOR 71 DAYS
     Route: 058
     Dates: start: 20120229, end: 20120509
  2. CYCLOPHOSPHAMIDE [Suspect]
     Indication: T-CELL LYMPHOMA
     Dosage: 1520 MG, UNK, 1X PER CYCLE FOR 106 DAYS
     Route: 042
     Dates: start: 20120229, end: 20120613
  3. VINCRISTINE [Suspect]
     Indication: T-CELL LYMPHOMA
     Dosage: 2 MG, UNK, 1X PER CYCLE FOR 36 DAYS
     Route: 042
     Dates: start: 20120229, end: 20120404
  4. PEGFILGRASTIM [Suspect]
     Indication: T-CELL LYMPHOMA
     Dosage: 6 MG, UNK, 1XPER CYCLE FOR 106 DAYS
     Dates: start: 20120303, end: 20120616
  5. PREDNISONE [Suspect]
     Indication: T-CELL LYMPHOMA
     Dosage: 100 MG, UNK,5XPER CYCLE FOR 110 DAYS
     Route: 048
     Dates: start: 20120229, end: 20120617
  6. DOXORUBICIN HCL [Suspect]
     Indication: T-CELL LYMPHOMA
     Dosage: 102 MG, UNK, 1X PER CYCLE FOR 106 DAYS
     Route: 042
     Dates: start: 20120229, end: 20120613

REACTIONS (2)
  - SMALL INTESTINE ULCER [None]
  - ABDOMINAL PAIN [None]
